FAERS Safety Report 4724902-1 (Version None)
Quarter: 2005Q3

REPORT INFORMATION
  Report Type: 
  Country: None (occurrence: None)
  Receive Date: 20050726
  Receipt Date: 20050714
  Transmission Date: 20060218
  Serious: Yes (Death)
  Sender: FDA-Public Use
  Company Number: GB-SANOFI-SYNTHELABO-A01200504847

PATIENT

DRUGS (2)
  1. PLAVIX [Suspect]
     Indication: CHEST PAIN
     Dosage: LOADING DOSE FOLLOWED BY 75 MG DAILY
     Route: 048
  2. WARFARIN SODIUM [Concomitant]
     Indication: CHEST PAIN
     Dosage: STANDART DOSE
     Route: 065

REACTIONS (3)
  - HAEMORRHAGE [None]
  - MYOCARDIAL INFARCTION [None]
  - PULMONARY EMBOLISM [None]
